FAERS Safety Report 14023075 (Version 1)
Quarter: 2017Q3

REPORT INFORMATION
  Report Type: Spontaneous
  Country: US (occurrence: None)
  Receive Date: 20170929
  Receipt Date: 20170929
  Transmission Date: 20171128
  Serious: No
  Sender: FDA-Public Use
  Company Number: None

PATIENT
  Age: 54 Year
  Sex: Female

DRUGS (1)
  1. LAMIVUDINE TAB 150MG [Suspect]
     Active Substance: LAMIVUDINE

REACTIONS (1)
  - Renal failure [None]

NARRATIVE: CASE EVENT DATE: 20170929
